FAERS Safety Report 9670293 (Version 1)
Quarter: 2013Q4

REPORT INFORMATION
  Report Type: Spontaneous
  Country: US (occurrence: US)
  Receive Date: 20131105
  Receipt Date: 20131105
  Transmission Date: 20140711
  Serious: Yes (Other)
  Sender: FDA-Public Use
  Company Number: US-BAXTER-2013BAX043388

PATIENT
  Age: 67 Year
  Sex: Female

DRUGS (3)
  1. VANCOMYCIN INJECTION, USP [Suspect]
     Indication: CELLULITIS
     Route: 042
  2. CLINDAMYCIN [Suspect]
     Indication: CELLULITIS
     Route: 042
  3. CEFTRIAXONE INJECTION, USP (IN DEXTROSE) [Concomitant]
     Indication: CELLULITIS

REACTIONS (2)
  - Acute generalised exanthematous pustulosis [Recovering/Resolving]
  - Multi-organ disorder [Recovered/Resolved]
